FAERS Safety Report 18046338 (Version 5)
Quarter: 2025Q1

REPORT INFORMATION
  Report Type: Report from Study
  Country: US (occurrence: US)
  Receive Date: 20200720
  Receipt Date: 20250115
  Transmission Date: 20250409
  Serious: Yes (Hospitalization, Other)
  Sender: TAKEDA
  Company Number: US-TAKEDA-2020TUS031179

PATIENT
  Age: 72 Year
  Sex: Male

DRUGS (10)
  1. IXAZOMIB [Suspect]
     Active Substance: IXAZOMIB
     Indication: Plasma cell myeloma
  2. IXAZOMIB [Suspect]
     Active Substance: IXAZOMIB
  3. IXAZOMIB [Suspect]
     Active Substance: IXAZOMIB
  4. IXAZOMIB [Suspect]
     Active Substance: IXAZOMIB
  5. IXAZOMIB [Suspect]
     Active Substance: IXAZOMIB
  6. REVLIMID [Concomitant]
     Active Substance: LENALIDOMIDE
  7. ACYCLOVIR [Concomitant]
     Active Substance: ACYCLOVIR
  8. FINASTERIDE [Concomitant]
     Active Substance: FINASTERIDE
  9. RAPAFLO [Concomitant]
     Active Substance: SILODOSIN
  10. XARELTO [Concomitant]
     Active Substance: RIVAROXABAN

REACTIONS (4)
  - Deafness [Unknown]
  - Pneumonia [Unknown]
  - Off label use [Unknown]
  - Urinary tract infection [Unknown]

NARRATIVE: CASE EVENT DATE: 20200601
